FAERS Safety Report 23697633 (Version 1)
Quarter: 2024Q2

REPORT INFORMATION
  Report Type: Spontaneous
  Country: GB (occurrence: GB)
  Receive Date: 20240402
  Receipt Date: 20240402
  Transmission Date: 20240716
  Serious: Yes (Other)
  Sender: FDA-Public Use
  Company Number: GB-002147023-NVSC2024GB061913

PATIENT

DRUGS (1)
  1. RUXOLITINIB [Suspect]
     Active Substance: RUXOLITINIB
     Indication: Polycythaemia vera
     Dosage: 10 MG, BID
     Route: 065

REACTIONS (4)
  - Full blood count abnormal [Recovered/Resolved]
  - Pruritus [Recovered/Resolved]
  - Thrombocytosis [Unknown]
  - Ulcer [Recovering/Resolving]
